FAERS Safety Report 23809220 (Version 1)
Quarter: 2024Q2

REPORT INFORMATION
  Report Type: Spontaneous
  Country: US (occurrence: None)
  Receive Date: 20240501
  Receipt Date: 20240501
  Transmission Date: 20240716
  Serious: No
  Sender: FDA-Public Use
  Company Number: None

PATIENT
  Age: 67 Year
  Sex: Male

DRUGS (1)
  1. KIMMTRAK [Suspect]
     Active Substance: TEBENTAFUSP-TEBN
     Dosage: OTHER FREQUENCY : ONCE;?
     Route: 040
     Dates: start: 20240430

REACTIONS (6)
  - Pyrexia [None]
  - Chills [None]
  - Headache [None]
  - Nausea [None]
  - Hypoxia [None]
  - Cytokine release syndrome [None]

NARRATIVE: CASE EVENT DATE: 20240430
